FAERS Safety Report 24910937 (Version 3)
Quarter: 2025Q1

REPORT INFORMATION
  Report Type: Spontaneous
  Country: DE (occurrence: DE)
  Receive Date: 20250131
  Receipt Date: 20250324
  Transmission Date: 20250408
  Serious: No
  Sender: PFIZER
  Company Number: DE-PFIZER INC-202500015853

PATIENT

DRUGS (1)
  1. GENOTROPIN [Suspect]
     Active Substance: SOMATROPIN

REACTIONS (1)
  - Product deposit [Unknown]
